FAERS Safety Report 9803847 (Version 1)
Quarter: 2014Q1

REPORT INFORMATION
  Report Type: Spontaneous
  Country: US (occurrence: None)
  Receive Date: 20140107
  Receipt Date: 20140107
  Transmission Date: 20141002
  Serious: Yes (Hospitalization)
  Sender: FDA-Public Use
  Company Number: None

PATIENT
  Age: 52 Year
  Sex: Female
  Weight: 95.8 kg

DRUGS (8)
  1. CYCLOPHOSPHAMIDE [Suspect]
  2. DOXORUBICIN HYDROCHLORIDE [Suspect]
  3. ALLOPURINOL [Concomitant]
  4. AMLODIPINE [Concomitant]
  5. FILGRASTIM [Concomitant]
  6. MORPHINE [Concomitant]
  7. OXYCODONE [Concomitant]
  8. SMX/TMP [Concomitant]

REACTIONS (4)
  - Vomiting [None]
  - Nausea [None]
  - Diarrhoea [None]
  - Abdominal pain upper [None]
